FAERS Safety Report 5956921-1 (Version None)
Quarter: 2008Q4

REPORT INFORMATION
  Report Type: 
  Country: None (occurrence: None)
  Receive Date: 20081118
  Receipt Date: 20081106
  Transmission Date: 20090506
  Serious: Yes (Hospitalization)
  Sender: FDA-Public Use
  Company Number: JP-PFIZER INC-2008092812

PATIENT
  Age: 79 Year
  Sex: Female

DRUGS (3)
  1. LIPITOR [Suspect]
     Indication: TYPE IIA HYPERLIPIDAEMIA
     Dosage: DAILY DOSE:10MG
     Route: 048
     Dates: start: 20081010, end: 20081025
  2. PLETAL [Concomitant]
     Dosage: DAILY DOSE:200MG
     Route: 048
  3. DEPAS [Concomitant]

REACTIONS (1)
  - LIVER DISORDER [None]
